FAERS Safety Report 25202101 (Version 1)
Quarter: 2025Q2

REPORT INFORMATION
  Report Type: Spontaneous
  Country: US (occurrence: US)
  Receive Date: 20250416
  Receipt Date: 20250416
  Transmission Date: 20250716
  Serious: No
  Sender: TAKEDA
  Company Number: US-TAKEDA-2025TUS036774

PATIENT
  Sex: Female
  Weight: 59 kg

DRUGS (3)
  1. EOHILIA [Suspect]
     Active Substance: BUDESONIDE
     Indication: Eosinophilic oesophagitis
     Dosage: 2 MILLIGRAM, BID
     Dates: start: 202502
  2. EOHILIA [Suspect]
     Active Substance: BUDESONIDE
     Dosage: 2 MILLIGRAM, QD
  3. PANTOPRAZOLE [Concomitant]
     Active Substance: PANTOPRAZOLE

REACTIONS (3)
  - No adverse event [Unknown]
  - Product storage error [Unknown]
  - Incorrect dose administered [Unknown]
